FAERS Safety Report 20227748 (Version 1)
Quarter: 2021Q4

REPORT INFORMATION
  Report Type: Spontaneous
  Country: DE (occurrence: DE)
  Receive Date: 20211224
  Receipt Date: 20211224
  Transmission Date: 20220303
  Serious: Yes (Other)
  Sender: FDA-Public Use
  Company Number: DE-ELI_LILLY_AND_COMPANY-DE202112006539

PATIENT
  Age: 52 Year
  Sex: Female

DRUGS (3)
  1. ABEMACICLIB [Suspect]
     Active Substance: ABEMACICLIB
     Indication: Breast cancer metastatic
     Dosage: UNK UNK, UNKNOWN
     Route: 048
     Dates: start: 202009
  2. LETROZOLE [Concomitant]
     Active Substance: LETROZOLE
     Indication: Product used for unknown indication
     Dosage: UNK UNK, UNKNOWN
     Route: 065
  3. LETROZOLE [Concomitant]
     Active Substance: LETROZOLE
     Dosage: UNK UNK, UNKNOWN
     Route: 065
     Dates: start: 202009

REACTIONS (4)
  - Metastases to meninges [Unknown]
  - Malignant neoplasm progression [Unknown]
  - Anaemia [Unknown]
  - Neurodermatitis [Unknown]

NARRATIVE: CASE EVENT DATE: 20201001
